FAERS Safety Report 8383633-X (Version None)
Quarter: 2012Q1

REPORT INFORMATION
  Report Type: 
  Country: None (occurrence: None)
  Receive Date: 20120323
  Receipt Date: 20110413
  Transmission Date: 20120608
  Serious: Yes (Other)
  Sender: FDA-Public Use
  Company Number: 163-21880-11032391

PATIENT
  Age: 56 Year
  Sex: Female

DRUGS (2)
  1. REVLIMID [Suspect]
     Indication: MYELODYSPLASTIC SYNDROME
     Dosage: 5 MG, DAILY X 21 DAYS, PO
     Route: 048
     Dates: start: 20090401
  2. PROCRIT [Concomitant]

REACTIONS (2)
  - URTICARIA [None]
  - RASH [None]
